FAERS Safety Report 19996835 (Version 1)
Quarter: 2021Q4

REPORT INFORMATION
  Report Type: Spontaneous
  Country: US (occurrence: US)
  Receive Date: 20211025
  Receipt Date: 20211025
  Transmission Date: 20220303
  Serious: Yes (Hospitalization)
  Sender: FDA-Public Use
  Company Number: None

PATIENT
  Age: 81 Year
  Sex: Male

DRUGS (2)
  1. AMBRISENTAN [Suspect]
     Active Substance: AMBRISENTAN
     Indication: Pulmonary arterial hypertension
     Route: 048
     Dates: start: 20151106
  2. AMBRISENTAN [Suspect]
     Active Substance: AMBRISENTAN
     Indication: Heritable pulmonary arterial hypertension

REACTIONS (6)
  - Acute respiratory failure [None]
  - Respiratory failure [None]
  - Hypervolaemia [None]
  - Respiratory disorder [None]
  - Pulmonary oedema [None]
  - Atrial fibrillation [None]

NARRATIVE: CASE EVENT DATE: 20211015
